FAERS Safety Report 8577488-8 (Version None)
Quarter: 2012Q3

REPORT INFORMATION
  Report Type: 
  Country: None (occurrence: None)
  Receive Date: 20120807
  Receipt Date: 20120725
  Transmission Date: 20120928
  Serious: Yes (Hospitalization, Other)
  Sender: FDA-Public Use
  Company Number: JP-PFIZER INC-2012188175

PATIENT
  Age: 62 Year
  Sex: Male

DRUGS (5)
  1. PRAVASTATIN [Concomitant]
     Dosage: UNK
  2. MIGLITOL [Suspect]
     Indication: TYPE 2 DIABETES MELLITUS
     Dosage: 25 MG, 3X/DAY
     Route: 048
     Dates: start: 20100806
  3. NOVORAPID [Concomitant]
     Dosage: UNK
     Dates: start: 20100608
  4. ADALAT CC [Concomitant]
     Dosage: UNK
  5. LOSARTAN POTASSIUM [Concomitant]
     Dosage: UNK

REACTIONS (3)
  - ORAL HERPES [None]
  - HYPOGLYCAEMIA [None]
  - THYROID CANCER [None]
